FAERS Safety Report 23690609 (Version 3)
Quarter: 2025Q1

REPORT INFORMATION
  Report Type: Spontaneous
  Country: ES (occurrence: ES)
  Receive Date: 20240401
  Receipt Date: 20250103
  Transmission Date: 20250409
  Serious: No
  Sender: TOLMAR
  Company Number: ES-TOLMAR, INC.-24ES047476

PATIENT

DRUGS (1)
  1. ELIGARD [Suspect]
     Active Substance: LEUPROLIDE ACETATE
     Indication: Product used for unknown indication
     Dosage: 45 MILLIGRAM, Q 6 MONTH

REACTIONS (3)
  - Wrong technique in product usage process [Unknown]
  - Intercepted product administration error [Unknown]
  - Product packaging quantity issue [Unknown]
